FAERS Safety Report 14602426 (Version 1)
Quarter: 2018Q1

REPORT INFORMATION
  Report Type: Spontaneous
  Country: US (occurrence: US)
  Receive Date: 20180306
  Receipt Date: 20180306
  Transmission Date: 20180509
  Serious: No
  Sender: FDA-Public Use
  Company Number: US-PFIZER INC-2018088121

PATIENT
  Age: 10 Year
  Sex: Female

DRUGS (1)
  1. EUCRISA [Suspect]
     Active Substance: CRISABOROLE
     Indication: ECZEMA
     Dosage: UNK, TWICE A DAY AS NEEDED
     Route: 061
     Dates: start: 20180220, end: 20180227

REACTIONS (2)
  - Application site pain [Unknown]
  - Application site discomfort [Recovered/Resolved]

NARRATIVE: CASE EVENT DATE: 20180220
